FAERS Safety Report 6329735-0 (Version None)
Quarter: 2009Q3

REPORT INFORMATION
  Report Type: 
  Country: None (occurrence: None)
  Receive Date: 20090826
  Receipt Date: 20090814
  Transmission Date: 20100115
  Serious: Yes (Death, Hospitalization, Disabling)
  Sender: FDA-Public Use
  Company Number: GB-PFIZER INC-2009249145

PATIENT
  Age: 58 Year

DRUGS (4)
  1. SUNITINIB MALATE [Suspect]
     Indication: RENAL CANCER METASTATIC
     Dosage: 50 MG, UNK
     Route: 048
     Dates: start: 20090616, end: 20090703
  2. CIPROFLOXACIN [Concomitant]
     Dosage: UNK
     Dates: start: 20090703, end: 20090705
  3. AMLODIPINE [Concomitant]
     Dosage: UNK
     Dates: start: 20090705
  4. DOXAZOSIN [Concomitant]
     Dosage: UNK
     Dates: start: 20090703, end: 20090703

REACTIONS (3)
  - DISEASE PROGRESSION [None]
  - MUSCULAR WEAKNESS [None]
  - RENAL CANCER METASTATIC [None]
